FAERS Safety Report 8795981 (Version 2)
Quarter: 2013Q1

REPORT INFORMATION
  Report Type: Spontaneous
  Country: US (occurrence: US)
  Receive Date: 20120919
  Receipt Date: 20130117
  Transmission Date: 20140127
  Serious: Yes (Other)
  Sender: FDA-Public Use
  Company Number: US-BRISTOL-MYERS SQUIBB COMPANY-16970964

PATIENT
  Age: 61 Year
  Sex: Male
  Weight: 72.56 kg

DRUGS (1)
  1. YERVOY [Suspect]
     Indication: MALIGNANT MELANOMA
     Dosage: 2ND YERVOY INFUSION WAS ON 31AUG2012
     Dates: start: 20120810

REACTIONS (3)
  - Metastases to skin [Unknown]
  - Lymphadenopathy [Unknown]
  - Weight decreased [Unknown]
